FAERS Safety Report 8516918-4 (Version None)
Quarter: 2012Q3

REPORT INFORMATION
  Report Type: 
  Country: None (occurrence: None)
  Receive Date: 20120718
  Receipt Date: 20120709
  Transmission Date: 20120928
  Serious: Yes (Death, Hospitalization, Other)
  Sender: FDA-Public Use
  Company Number: CZ-ELI_LILLY_AND_COMPANY-CZ201207003306

PATIENT
  Sex: Female

DRUGS (10)
  1. PREDNISONE TAB [Concomitant]
     Indication: PULMONARY FIBROSIS
     Dosage: 5 MG, QD
     Route: 065
     Dates: start: 19990101
  2. ALLOPURINOL [Concomitant]
     Dosage: UNK, UNKNOWN
     Route: 065
  3. LANZUL [Concomitant]
     Indication: DYSPEPSIA
     Dosage: UNK, UNKNOWN
     Route: 065
  4. RAMIPRIL [Concomitant]
     Indication: HYPERTENSION
     Dosage: UNK, UNKNOWN
     Route: 065
  5. VIGANTOL [Concomitant]
     Indication: OSTEOPOROSIS
     Dosage: UNK, UNKNOWN
     Route: 065
  6. KOMBI-KALZ [Concomitant]
     Dosage: UNK, UNKNOWN
     Route: 065
  7. FUROSEMIDE [Concomitant]
     Dosage: UNK, UNKNOWN
     Route: 065
  8. FORTEO [Suspect]
     Indication: OSTEOPOROSIS
     Dosage: 20 UG, QD
     Route: 058
     Dates: start: 20111215
  9. WARFARIN SODIUM [Concomitant]
     Indication: EMBOLISM
     Dosage: UNK, UNKNOWN
     Route: 065
  10. FORADIL [Concomitant]
     Indication: LUNG DISORDER
     Dosage: UNK, UNKNOWN
     Route: 065

REACTIONS (7)
  - SEPSIS [None]
  - PNEUMONIA [None]
  - INTERSTITIAL LUNG DISEASE [None]
  - RESPIRATORY FAILURE [None]
  - ALTERED STATE OF CONSCIOUSNESS [None]
  - RENAL FAILURE [None]
  - HYPERKALAEMIA [None]
